FAERS Safety Report 9124337 (Version 1)
Quarter: 2013Q1

REPORT INFORMATION
  Report Type: Spontaneous
  Country: GB (occurrence: GB)
  Receive Date: 20130227
  Receipt Date: 20130227
  Transmission Date: 20140127
  Serious: Yes (Hospitalization)
  Sender: FDA-Public Use
  Company Number: PHFR2013GB001367

PATIENT
  Sex: 0

DRUGS (1)
  1. TEGRETOL RETARD [Suspect]
     Dosage: 200 MG, BID

REACTIONS (2)
  - Pneumonia [Unknown]
  - Malaise [Unknown]
